FAERS Safety Report 19483162 (Version 4)
Quarter: 2021Q3

REPORT INFORMATION
  Report Type: Report from Study
  Country: None (occurrence: US)
  Receive Date: 20210701
  Receipt Date: 20210813
  Transmission Date: 20211014
  Serious: Yes (Other)
  Sender: FDA-Public Use
  Company Number: US-ABBVIE-21K-163-3971324-00

PATIENT
  Sex: Male
  Weight: 113.5 kg

DRUGS (5)
  1. PFIZER?BIONTECH COVID?19 VACCINE [Concomitant]
     Active Substance: TOZINAMERAN
     Indication: COVID-19 IMMUNISATION
     Route: 030
     Dates: start: 202103, end: 202103
  2. PFIZER?BIONTECH COVID?19 VACCINE [Concomitant]
     Active Substance: TOZINAMERAN
     Route: 030
     Dates: start: 202103, end: 202103
  3. SKYRIZI [Suspect]
     Active Substance: RISANKIZUMAB-RZAA
     Indication: PSORIASIS
     Dosage: YEAR AND A HALF AGO
     Route: 058
     Dates: start: 2020
  4. FLOMAX [MORNIFLUMATE] [Concomitant]
     Active Substance: MORNIFLUMATE
     Indication: BLADDER DISORDER
  5. BABY ASPIRIN [Concomitant]
     Active Substance: ASPIRIN
     Indication: HYPERTENSION

REACTIONS (2)
  - Osteoarthritis [Recovered/Resolved]
  - Arthritis [Recovered/Resolved]
